FAERS Safety Report 13130487 (Version 1)
Quarter: 2017Q1

REPORT INFORMATION
  Report Type: Report from Study
  Country: US (occurrence: US)
  Receive Date: 20170119
  Receipt Date: 20170119
  Transmission Date: 20170428
  Serious: Yes (Life-Threatening, Hospitalization, Other)
  Sender: FDA-Public Use
  Company Number: US-TEVA-730267USA

PATIENT
  Age: 25 Year
  Sex: Female

DRUGS (2)
  1. TRI-LO SPRINTEC [Suspect]
     Active Substance: ETHINYL ESTRADIOL\NORGESTIMATE
     Indication: CHEMICAL CONTRACEPTION
     Dosage: 7X: NGM 180MICROGRAMS/EE 25MICROGRAMS 7X: NGM 215MICROGRAMS/EE 25MICROGRAMS
     Route: 048
     Dates: start: 201209, end: 201304
  2. SINGULAIR [Concomitant]
     Active Substance: MONTELUKAST SODIUM
     Indication: ASTHMA

REACTIONS (2)
  - Pleural effusion [Unknown]
  - Pulmonary embolism [Unknown]

NARRATIVE: CASE EVENT DATE: 201304
